FAERS Safety Report 8960431 (Version 1)
Quarter: 2012Q4

REPORT INFORMATION
  Report Type: 
  Country: US (occurrence: US)
  Receive Date: 20121211
  Receipt Date: 20121211
  Transmission Date: 20130627
  Serious: Yes (Other)
  Sender: FDA-Public Use
  Company Number: CHPA2012US024564

PATIENT
  Age: 85 Year
  Sex: Male

DRUGS (1)
  1. MAALOX UNKNOWN [Suspect]
     Dosage: Unk, Unk
     Route: 048

REACTIONS (2)
  - Bowel movement irregularity [Recovered/Resolved]
  - Gastric disorder [Unknown]
